FAERS Safety Report 12427007 (Version 9)
Quarter: 2016Q4

REPORT INFORMATION
  Report Type: Report from Study
  Country: US (occurrence: US)
  Receive Date: 20160601
  Receipt Date: 20161208
  Transmission Date: 20170207
  Serious: Yes (Death, Hospitalization, Other)
  Sender: FDA-Public Use
  Company Number: US-BAYER-2016-099948

PATIENT
  Age: 78 Year
  Sex: Female

DRUGS (2)
  1. NEXAVAR [Suspect]
     Active Substance: SORAFENIB
     Indication: HEPATOCELLULAR CARCINOMA
     Dosage: 400 MG, BID
     Route: 048
     Dates: start: 20160516
  2. NEXAVAR [Suspect]
     Active Substance: SORAFENIB
     Indication: HEPATOCELLULAR CARCINOMA
     Dosage: 400 MG, BID
     Route: 048
     Dates: start: 2016

REACTIONS (25)
  - Dysuria [None]
  - Cough [None]
  - Ear pain [None]
  - Skin disorder [None]
  - Dysgeusia [None]
  - Ear pruritus [None]
  - Mass [None]
  - Food poisoning [None]
  - Alopecia [None]
  - Erythema [None]
  - Emotional distress [None]
  - Ageusia [None]
  - Nausea [None]
  - Weight decreased [None]
  - Eating disorder [None]
  - Rash [None]
  - Decreased appetite [None]
  - Thermal burn [None]
  - Pruritus [None]
  - Headache [None]
  - Dry skin [None]
  - Facial pain [None]
  - Hepatocellular carcinoma [Fatal]
  - Hospitalisation [None]
  - Diarrhoea [None]

NARRATIVE: CASE EVENT DATE: 2016
